FAERS Safety Report 20254113 (Version 1)
Quarter: 2021Q4

REPORT INFORMATION
  Report Type: Spontaneous
  Country: AU (occurrence: AU)
  Receive Date: 20211230
  Receipt Date: 20211230
  Transmission Date: 20220303
  Serious: Yes (Other)
  Sender: FDA-Public Use
  Company Number: AU-ALKEM LABORATORIES LIMITED-AU-ALKEM-2021-08111

PATIENT
  Age: 38 Year
  Sex: Male

DRUGS (3)
  1. OLANZAPINE [Suspect]
     Active Substance: OLANZAPINE
     Indication: Product used for unknown indication
     Dosage: UNK
     Route: 065
  2. QUETIAPINE FUMARATE [Suspect]
     Active Substance: QUETIAPINE FUMARATE
     Indication: Product used for unknown indication
     Dosage: UNK
     Route: 065
  3. CLOZARIL [Suspect]
     Active Substance: CLOZAPINE
     Indication: Product used for unknown indication
     Dosage: UNK
     Route: 065

REACTIONS (22)
  - Myocarditis [Unknown]
  - Schizophrenia [Unknown]
  - Behaviour disorder [Unknown]
  - Blood bilirubin decreased [Unknown]
  - Blood creatine phosphokinase decreased [Unknown]
  - Blood magnesium decreased [Unknown]
  - C-reactive protein increased [Unknown]
  - Diarrhoea [Unknown]
  - Dizziness [Unknown]
  - Eosinophil count increased [Unknown]
  - Fatigue [Unknown]
  - Fluid intake reduced [Unknown]
  - Gamma-glutamyltransferase increased [Unknown]
  - Haemoglobin decreased [Unknown]
  - Hypophagia [Unknown]
  - Lymphocyte count [Unknown]
  - Neutrophil count increased [Unknown]
  - N-terminal prohormone brain natriuretic peptide increased [Unknown]
  - Platelet count decreased [Unknown]
  - Pyrexia [Unknown]
  - Sinus tachycardia [Unknown]
  - Troponin I increased [Unknown]
